FAERS Safety Report 21855152 (Version 2)
Quarter: 2023Q1

REPORT INFORMATION
  Report Type: Spontaneous
  Country: CN (occurrence: CN)
  Receive Date: 20230112
  Receipt Date: 20230116
  Transmission Date: 20230418
  Serious: Yes (Hospitalization, Other)
  Sender: FDA-Public Use
  Company Number: CN-ORGANON-O2301CHN000379

PATIENT
  Age: 31 Year
  Sex: Female
  Weight: 43 kg

DRUGS (11)
  1. FOLLITROPIN BETA [Suspect]
     Active Substance: FOLLITROPIN BETA
     Indication: Ovulation induction
     Dosage: 200IU, QD
     Route: 058
     Dates: start: 20221201, end: 20221204
  2. FOLLITROPIN BETA [Suspect]
     Active Substance: FOLLITROPIN BETA
     Dosage: 200IU, QD
     Route: 058
     Dates: start: 20221207, end: 20221208
  3. ORGALUTRAN [Suspect]
     Active Substance: GANIRELIX ACETATE
     Indication: Ovulation induction
     Dosage: 0.25MG, QD
     Route: 058
     Dates: start: 20221205, end: 20221205
  4. ORGALUTRAN [Suspect]
     Active Substance: GANIRELIX ACETATE
     Dosage: 0.5MG, QD
     Route: 058
     Dates: start: 20221206, end: 20221206
  5. ORGALUTRAN [Suspect]
     Active Substance: GANIRELIX ACETATE
     Dosage: 0.25MG, QD
     Route: 058
     Dates: start: 20221207, end: 20221208
  6. ORGALUTRAN [Suspect]
     Active Substance: GANIRELIX ACETATE
     Dosage: 0.25MG, QD
     Route: 058
     Dates: start: 20221210, end: 20221210
  7. TRIPTORELIN ACETATE [Suspect]
     Active Substance: TRIPTORELIN ACETATE
     Indication: Ovulation induction
     Dosage: 0.2MG, QD
     Route: 058
     Dates: start: 20221010, end: 20221010
  8. CHORIONIC GONADOTROPHIN [Suspect]
     Active Substance: CHORIOGONADOTROPIN ALFA
     Indication: Ovulation induction
     Dosage: 2000IU, QD
     Route: 030
     Dates: start: 20221210, end: 20221210
  9. UROFOLLITROPIN [Suspect]
     Active Substance: UROFOLLITROPIN
     Indication: Ovulation induction
     Dosage: 150IU, QD
     Route: 030
     Dates: start: 20221210, end: 20221210
  10. LETROZOLE [Suspect]
     Active Substance: LETROZOLE
     Indication: Ovulation induction
     Dosage: 2.5MG, QD
     Route: 048
     Dates: start: 20221212, end: 20221212
  11. SODIUM CHLORIDE [Concomitant]
     Active Substance: SODIUM CHLORIDE
     Indication: Vehicle solution use
     Dosage: 2 ML, QD
     Dates: start: 20221210, end: 20221210

REACTIONS (4)
  - Ovarian hyperstimulation syndrome [Recovering/Resolving]
  - Abdominal pain [Recovering/Resolving]
  - Nausea [Recovering/Resolving]
  - Vomiting [Recovering/Resolving]

NARRATIVE: CASE EVENT DATE: 20221212
